FAERS Safety Report 10560027 (Version 1)
Quarter: 2014Q4

REPORT INFORMATION
  Report Type: Spontaneous
  Country: US (occurrence: None)
  Receive Date: 20141031
  Receipt Date: 20141031
  Transmission Date: 20150529
  Serious: No
  Sender: FDA-Public Use
  Company Number: None

PATIENT
  Age: 35 Year
  Sex: Female

DRUGS (1)
  1. ACTIMMUNE [Suspect]
     Active Substance: INTERFERON GAMMA-1B
     Indication: NEUTROPHIL FUNCTION DISORDER
     Route: 058
     Dates: start: 20130726

REACTIONS (5)
  - Injection site reaction [None]
  - Drug administration error [None]
  - Depression [None]
  - Fatigue [None]
  - Accidental overdose [None]

NARRATIVE: CASE EVENT DATE: 20141030
